FAERS Safety Report 10403162 (Version 2)
Quarter: 2014Q4

REPORT INFORMATION
  Report Type: Spontaneous
  Country: US (occurrence: US)
  Receive Date: 20140822
  Receipt Date: 20141022
  Transmission Date: 20150528
  Serious: Yes (Death, Hospitalization, Other)
  Sender: FDA-Public Use
  Company Number: US-GLAXOSMITHKLINE-A1085898A

PATIENT

DRUGS (3)
  1. TEMSIROLIMUS [Concomitant]
     Active Substance: TEMSIROLIMUS
     Indication: RENAL CANCER
     Dosage: 25 DF, SINGLE
     Route: 042
     Dates: start: 20140721, end: 20140721
  2. VOTRIENT [Suspect]
     Active Substance: PAZOPANIB HYDROCHLORIDE
     Indication: ANGIOSARCOMA
  3. VOTRIENT [Suspect]
     Active Substance: PAZOPANIB HYDROCHLORIDE
     Indication: RENAL CANCER
     Dosage: 200 MG TABLETS TAKE 2 TABLETS OR 400 MG BY MOUTH TWICE DAILY OR 400 MG X 2 DAILY
     Route: 048
     Dates: start: 20140303, end: 20140717

REACTIONS (4)
  - Angiosarcoma metastatic [Fatal]
  - Renal cancer metastatic [Fatal]
  - Drug ineffective [Recovered/Resolved]
  - Hepatic embolisation [Recovered/Resolved]

NARRATIVE: CASE EVENT DATE: 20140320
